FAERS Safety Report 17215651 (Version 1)
Quarter: 2019Q4

REPORT INFORMATION
  Report Type: Report from Study
  Country: CA (occurrence: CA)
  Receive Date: 20191230
  Receipt Date: 20191230
  Transmission Date: 20200122
  Serious: Yes (Other)
  Sender: FDA-Public Use
  Company Number: CA-NALPROPION PHARMACEUTICALS INC.-2019-009336

PATIENT

DRUGS (8)
  1. CONTRAVE [Suspect]
     Active Substance: BUPROPION HYDROCHLORIDE\NALTREXONE HYDROCHLORIDE
     Dosage: FIRST ATTEMPT, SECOND WEEK
     Route: 048
  2. CONTRAVE [Suspect]
     Active Substance: BUPROPION HYDROCHLORIDE\NALTREXONE HYDROCHLORIDE
     Dosage: BACK TO TWO PILLS AFTER THIRD WEEK OF FIRST ATTEMPT
     Route: 048
  3. OZEMPIC [Concomitant]
     Active Substance: SEMAGLUTIDE
     Indication: WEIGHT CONTROL
     Dosage: 1 IN 1 WK (ROUTE: INJECTION)
  4. CONTRAVE [Suspect]
     Active Substance: BUPROPION HYDROCHLORIDE\NALTREXONE HYDROCHLORIDE
     Dosage: FIRST ATTEMPT, THIRD WEEK
     Route: 048
  5. CONTRAVE [Suspect]
     Active Substance: BUPROPION HYDROCHLORIDE\NALTREXONE HYDROCHLORIDE
     Dosage: 27/OCT/2019 (APPROXIMATELY) TO 02/NOV/2019 (APPROXIMATELY)
     Route: 048
     Dates: start: 201910, end: 201911
  6. CONTRAVE [Suspect]
     Active Substance: BUPROPION HYDROCHLORIDE\NALTREXONE HYDROCHLORIDE
     Indication: WEIGHT DECREASED
     Dosage: FIRST ATTEMPT, FIRST WEEK
     Route: 048
  7. CONTRAVE [Suspect]
     Active Substance: BUPROPION HYDROCHLORIDE\NALTREXONE HYDROCHLORIDE
     Dosage: 03/NOV/2019 (APPROXIMATELY)
     Route: 048
     Dates: start: 201911
  8. VALACYCLOVIR [Suspect]
     Active Substance: VALACYCLOVIR HYDROCHLORIDE
     Indication: PRODUCT USED FOR UNKNOWN INDICATION
     Dosage: UNK
     Route: 065

REACTIONS (7)
  - Meniere^s disease [Unknown]
  - Facial paralysis [Unknown]
  - Food craving [Not Recovered/Not Resolved]
  - Synovial cyst [Unknown]
  - Nausea [Unknown]
  - Drug titration error [Unknown]
  - Urticaria [Unknown]

NARRATIVE: CASE EVENT DATE: 2019
